FAERS Safety Report 20638748 (Version 1)
Quarter: 2022Q1

REPORT INFORMATION
  Report Type: Report from Study
  Country: US (occurrence: US)
  Receive Date: 20220325
  Receipt Date: 20220325
  Transmission Date: 20220423
  Serious: Yes (Hospitalization)
  Sender: FDA-Public Use
  Company Number: US-TEVA-2022-US-2020418

PATIENT
  Age: 65 Year
  Sex: Male
  Weight: 103.4 kg

DRUGS (18)
  1. METFORMIN [Suspect]
     Active Substance: METFORMIN HYDROCHLORIDE
     Indication: Diabetes mellitus
     Route: 048
     Dates: start: 20110210, end: 20181116
  2. LISINOPRIL [Suspect]
     Active Substance: LISINOPRIL
     Indication: Hypertension
     Dosage: DAILY
     Route: 048
     Dates: start: 20130711, end: 20181116
  3. TRAZODONE [Suspect]
     Active Substance: TRAZODONE HYDROCHLORIDE
     Indication: Insomnia
     Route: 048
     Dates: start: 20150423
  4. TRAZODONE [Suspect]
     Active Substance: TRAZODONE HYDROCHLORIDE
     Route: 048
     Dates: start: 201810, end: 20181116
  5. LEXAPRO [Suspect]
     Active Substance: ESCITALOPRAM OXALATE
     Indication: Bipolar disorder
     Dosage: DAILY
     Route: 065
     Dates: start: 20150423, end: 20181116
  6. INVESTIGATIONAL PRODUCT [Suspect]
     Active Substance: INVESTIGATIONAL PRODUCT
     Dosage: PF-06425090;PLACEBO
     Route: 030
     Dates: start: 20180322, end: 20180322
  7. VICTOZA [Concomitant]
     Active Substance: LIRAGLUTIDE
     Dates: start: 20170111
  8. PRAVACHOL [Concomitant]
     Active Substance: PRAVASTATIN SODIUM
     Dates: start: 20100817
  9. PANTOPRAZOLE [Concomitant]
     Active Substance: PANTOPRAZOLE
     Dates: start: 20161227
  10. LUNESTA [Concomitant]
     Active Substance: ESZOPICLONE
  11. UMECLIDINIUM BROMIDE\VILANTEROL TRIFENATATE [Concomitant]
     Active Substance: UMECLIDINIUM BROMIDE\VILANTEROL TRIFENATATE
     Dates: start: 20171002
  12. GABAPENTIN [Concomitant]
     Active Substance: GABAPENTIN
     Dates: start: 20171130
  13. PROAIR HFA [Concomitant]
     Active Substance: ALBUTEROL SULFATE
     Dates: start: 20180322
  14. CYCLIZINE [Concomitant]
     Active Substance: CYCLIZINE
  15. COMBIVENT [Concomitant]
     Active Substance: ALBUTEROL SULFATE\IPRATROPIUM BROMIDE
     Dates: start: 20171002
  16. VALIUM [Concomitant]
     Active Substance: DIAZEPAM
     Dates: start: 20170711
  17. GLYBURIDE [Concomitant]
     Active Substance: GLYBURIDE
     Dates: start: 20101207
  18. GEMFIBROZIL [Concomitant]
     Active Substance: GEMFIBROZIL
     Dates: start: 20160818

REACTIONS (1)
  - Hyponatraemia [Recovered/Resolved]

NARRATIVE: CASE EVENT DATE: 20181116
